FAERS Safety Report 9824589 (Version 2)
Quarter: 2014Q1

REPORT INFORMATION
  Report Type: Spontaneous
  Country: US (occurrence: US)
  Receive Date: 20140117
  Receipt Date: 20140117
  Transmission Date: 20141002
  Serious: No
  Sender: FDA-Public Use
  Company Number: US-GILEAD-2011-0038972

PATIENT
  Age: 61 Year
  Sex: Female
  Weight: 57.61 kg

DRUGS (15)
  1. LETAIRIS [Suspect]
     Indication: PULMONARY HYPERTENSION
     Route: 048
     Dates: start: 20110407
  2. LETAIRIS [Suspect]
     Indication: SCLERODERMA
  3. VENTAVIS [Concomitant]
  4. COUMADIN [Concomitant]
  5. PROCARDIA XL [Concomitant]
  6. ZAROXOLYN [Concomitant]
  7. LASIX [Concomitant]
  8. LIPITOR [Concomitant]
  9. PRILOSEC [Concomitant]
  10. ZANTAC [Concomitant]
  11. NEURONTIN [Concomitant]
  12. LEVAQUIN [Concomitant]
  13. IMODIUM [Concomitant]
  14. PHENERGAN [Concomitant]
  15. AMBIEN [Concomitant]

REACTIONS (1)
  - Dizziness [Recovered/Resolved]
